FAERS Safety Report 7607395-6 (Version None)
Quarter: 2011Q3

REPORT INFORMATION
  Report Type: 
  Country: None (occurrence: None)
  Receive Date: 20110713
  Receipt Date: 20110629
  Transmission Date: 20111222
  Serious: Yes (Other)
  Sender: FDA-Public Use
  Company Number: US-TYCO HEALTHCARE/MALLINCKRODT-T201101353

PATIENT
  Age: 47 Year
  Sex: Male

DRUGS (7)
  1. EMTRICITABINE [Concomitant]
     Dosage: 200 MG DAILY
  2. METHADOSE [Suspect]
     Dosage: 120 MG; DAILY
  3. TENOFOVIR DISOPROXIL FUMARATE [Concomitant]
  4. FLURAZEPAM [Concomitant]
     Dosage: 30 MG DAILY
  5. RITONAVIR [Suspect]
     Dosage: 300 MG DAILY
  6. ATAZANAVIR [Suspect]
     Indication: HIV INFECTION
     Dosage: 300 MG DAILY
  7. DIAZEPAM [Concomitant]
     Dosage: 10 MG, TID

REACTIONS (4)
  - ELECTROCARDIOGRAM QT PROLONGED [None]
  - SYNCOPE [None]
  - DRUG INTERACTION [None]
  - VENTRICULAR TACHYCARDIA [None]
